FAERS Safety Report 5973861-2 (Version None)
Quarter: 2008Q4

REPORT INFORMATION
  Report Type: 
  Country: None (occurrence: None)
  Receive Date: 20081201
  Receipt Date: 20080118
  Transmission Date: 20090506
  Serious: Yes (Other)
  Sender: FDA-Public Use
  Company Number: US-AMGEN-QUU247375

PATIENT
  Sex: Female

DRUGS (6)
  1. ENBREL [Suspect]
     Indication: RHEUMATOID ARTHRITIS
  2. PLAQUENIL [Concomitant]
  3. METHOTREXATE [Concomitant]
  4. SYNTHROID [Concomitant]
  5. ALTACE [Concomitant]
  6. PLAVIX [Concomitant]

REACTIONS (1)
  - SUPERFICIAL SPREADING MELANOMA STAGE IV [None]
